FAERS Safety Report 7555130-2 (Version None)
Quarter: 2011Q2

REPORT INFORMATION
  Report Type: 
  Country: None (occurrence: None)
  Receive Date: 20110617
  Receipt Date: 20110608
  Transmission Date: 20111010
  Serious: Yes (Hospitalization, Other)
  Sender: FDA-Public Use
  Company Number: JP-UCBSA-006831

PATIENT
  Sex: Female

DRUGS (19)
  1. POLAPREZINC [Concomitant]
  2. TRIAZOLAM [Concomitant]
     Indication: INSOMNIA
     Dosage: 0.25 MG IN CASE OF INSOMNIA
  3. ELCATONIN [Concomitant]
     Dates: start: 20100202, end: 20100317
  4. CERTOLIZUMAB PEGOL [Suspect]
     Route: 058
  5. CERTOLIZUMAB PEGOL [Suspect]
     Route: 058
     Dates: start: 20100202, end: 20110118
  6. CERTOLIZUMAB PEGOL [Suspect]
     Route: 058
     Dates: start: 20110202, end: 20110301
  7. PREDNISOLONE [Concomitant]
  8. ALFACALCIDOL [Concomitant]
  9. CELECOXIB [Concomitant]
     Dates: start: 20090417, end: 20100202
  10. TIZANIDINE HYDROCHLORIDE [Concomitant]
  11. LOXOPROFEN SODIUM [Concomitant]
     Dates: start: 20100203
  12. LOXOPROFEN SODIUM [Concomitant]
     Dates: start: 20100708
  13. CERTOLIZUMAB PEGOL [Suspect]
     Indication: RHEUMATOID ARTHRITIS
     Route: 058
  14. POLAPREZINC [Concomitant]
  15. PREDNISOLONE [Concomitant]
     Dates: start: 20090503
  16. KETOPROFEN [Concomitant]
     Dosage: ADEQUATE DOSE
     Dates: start: 20090529
  17. PIRMENOL HYDROCHLORIDE [Concomitant]
  18. ALENDRONATE SODIUM [Concomitant]
  19. DICLOFENAC SODIUM [Concomitant]
     Dates: start: 20090203

REACTIONS (2)
  - LYMPHOMA [None]
  - SPINAL COMPRESSION FRACTURE [None]
